FAERS Safety Report 25254666 (Version 2)
Quarter: 2025Q2

REPORT INFORMATION
  Report Type: Report from Study
  Country: US (occurrence: US)
  Receive Date: 20250430
  Receipt Date: 20250603
  Transmission Date: 20250716
  Serious: Yes (Hospitalization, Other)
  Sender: TAKEDA
  Company Number: US-TAKEDA-2025TUS041341

PATIENT
  Sex: Female

DRUGS (2)
  1. PONATINIB [Suspect]
     Active Substance: PONATINIB
     Indication: Chronic myelomonocytic leukaemia
     Dosage: 45 MILLIGRAM, QD
  2. PONATINIB [Suspect]
     Active Substance: PONATINIB
     Dosage: 45 MILLIGRAM, QD
     Dates: end: 202504

REACTIONS (6)
  - Respiratory syncytial virus infection [Unknown]
  - Transient ischaemic attack [Unknown]
  - Headache [Unknown]
  - Back pain [Unknown]
  - Myalgia [Unknown]
  - Abdominal pain [Unknown]
